FAERS Safety Report 7010002-7 (Version None)
Quarter: 2010Q3

REPORT INFORMATION
  Report Type: 
  Country: None (occurrence: None)
  Receive Date: 20100909
  Receipt Date: 20100608
  Transmission Date: 20110219
  Serious: Yes (Other)
  Sender: FDA-Public Use
  Company Number: 2010SP032258

PATIENT
  Age: 47 Year
  Sex: Male

DRUGS (2)
  1. SAPHRIS [Suspect]
     Indication: BIPOLAR DISORDER
     Dosage: 5 MG ; BID ; SL
     Route: 060
     Dates: start: 20100501, end: 20100603
  2. LEXAPRO [Concomitant]

REACTIONS (1)
  - AKATHISIA [None]
